FAERS Safety Report 6748689-6 (Version None)
Quarter: 2010Q2

REPORT INFORMATION
  Report Type: 
  Country: None (occurrence: None)
  Receive Date: 20100601
  Receipt Date: 20100518
  Transmission Date: 20101027
  Serious: Yes (Hospitalization)
  Sender: FDA-Public Use
  Company Number: GB-RANBAXY-2010RR-34044

PATIENT
  Age: 48 Year
  Weight: 85.4 kg

DRUGS (7)
  1. CIPROFLOXACIN [Suspect]
     Dosage: UNK
     Route: 048
     Dates: start: 20100315, end: 20100325
  2. ATENOLOL [Concomitant]
  3. DIGOXIN [Concomitant]
  4. NIFEDIPINE [Concomitant]
  5. PAROXETINE HCL [Concomitant]
  6. RANITIDINE [Concomitant]
  7. WARFARIN SODIUM [Concomitant]

REACTIONS (2)
  - BLOOD CREATININE INCREASED [None]
  - RENAL FAILURE ACUTE [None]
